FAERS Safety Report 18150889 (Version 2)
Quarter: 2020Q3

REPORT INFORMATION
  Report Type: Spontaneous
  Country: FR (occurrence: FR)
  Receive Date: 20200814
  Receipt Date: 20200902
  Transmission Date: 20201103
  Serious: Yes (Other)
  Sender: FDA-Public Use
  Company Number: FR-BRISTOL-MYERS SQUIBB COMPANY-BMS-2020-064017

PATIENT
  Age: 65 Year
  Sex: Male

DRUGS (1)
  1. NIVOLUMAB [Suspect]
     Active Substance: NIVOLUMAB
     Indication: NON-SMALL CELL LUNG CANCER METASTATIC
     Dosage: 3 MILLIGRAM/KILOGRAM
     Route: 065
     Dates: start: 201711

REACTIONS (5)
  - Immune-mediated pancreatitis [Recovered/Resolved]
  - Pancreatic failure [Recovered/Resolved]
  - Hypothyroidism [Recovered/Resolved]
  - Off label use [Unknown]
  - Coeliac disease [Recovered/Resolved]
